FAERS Safety Report 8064538-0 (Version None)
Quarter: 2012Q1

REPORT INFORMATION
  Report Type: 
  Country: None (occurrence: None)
  Receive Date: 20120123
  Receipt Date: 20120110
  Transmission Date: 20120608
  Serious: Yes (Hospitalization)
  Sender: FDA-Public Use
  Company Number: JP-AMGEN-JPNSP2011056205

PATIENT
  Age: 54 Year
  Sex: Female
  Weight: 48 kg

DRUGS (20)
  1. CINACALCET HYDROCHLORIDE [Suspect]
     Route: 048
     Dates: start: 20110916, end: 20111025
  2. LASIX [Concomitant]
     Route: 048
     Dates: start: 20101028, end: 20111011
  3. CINACALCET HYDROCHLORIDE [Suspect]
     Route: 048
     Dates: start: 20110906, end: 20110915
  4. ROCALTROL [Concomitant]
     Route: 048
     Dates: start: 20111029, end: 20111215
  5. ROCALTROL [Concomitant]
     Route: 048
     Dates: start: 20111216
  6. CINACALCET HYDROCHLORIDE [Suspect]
     Route: 048
     Dates: start: 20110930, end: 20111013
  7. LASIX [Concomitant]
     Route: 048
     Dates: start: 20111216
  8. CALCIUM CARBONATE [Concomitant]
     Route: 048
     Dates: start: 20110526
  9. CINACALCET HYDROCHLORIDE [Suspect]
     Dosage: 12.5 MG, QD
     Route: 048
     Dates: start: 20110903, end: 20110915
  10. CINACALCET HYDROCHLORIDE [Suspect]
     Route: 048
     Dates: start: 20110916, end: 20110929
  11. LASIX [Concomitant]
     Indication: OLIGURIA
     Dosage: 40 MG, QD
     Route: 048
     Dates: start: 20101014, end: 20101027
  12. LOSARTAN POTASSIUM [Concomitant]
     Route: 048
     Dates: start: 20110308
  13. CALCIUM CARBONATE [Concomitant]
     Indication: HYPERPHOSPHATAEMIA
     Route: 048
     Dates: start: 20110118, end: 20110525
  14. LASIX [Concomitant]
     Route: 048
     Dates: start: 20111025, end: 20111215
  15. ROCALTROL [Concomitant]
     Route: 048
     Dates: start: 20111014, end: 20111027
  16. EPOGIN INJ. 9000,12000 [Concomitant]
     Indication: NEPHROGENIC ANAEMIA
     Route: 058
     Dates: start: 20101227, end: 20111028
  17. CINACALCET HYDROCHLORIDE [Suspect]
     Indication: HYPERPARATHYROIDISM SECONDARY
     Dosage: 50 MG, QD
     Route: 048
     Dates: start: 20111014, end: 20111025
  18. ROCALTROL [Concomitant]
     Indication: HYPERPARATHYROIDISM SECONDARY
     Route: 048
     Dates: start: 20110914, end: 20111013
  19. LASIX [Concomitant]
     Route: 048
     Dates: start: 20111011, end: 20111024
  20. LOSARTAN POTASSIUM [Concomitant]
     Indication: HYPERTENSION
     Route: 048
     Dates: start: 20101221, end: 20110307

REACTIONS (2)
  - DIARRHOEA [None]
  - HYPOKALAEMIA [None]
